FAERS Safety Report 20924605 (Version 1)
Quarter: 2022Q2

REPORT INFORMATION
  Report Type: Spontaneous
  Country: KR (occurrence: KR)
  Receive Date: 20220607
  Receipt Date: 20220607
  Transmission Date: 20220721
  Serious: Yes (Hospitalization, Other)
  Sender: FDA-Public Use
  Company Number: KR-ELI_LILLY_AND_COMPANY-KR202205013215

PATIENT
  Sex: Female

DRUGS (1)
  1. TERIPARATIDE [Suspect]
     Active Substance: TERIPARATIDE
     Indication: Product used for unknown indication
     Dosage: 20 UG, DAILY
     Route: 058
     Dates: start: 2021

REACTIONS (8)
  - Fracture [Recovered/Resolved]
  - Joint injury [Unknown]
  - Hip fracture [Unknown]
  - Fracture [Unknown]
  - Discomfort [Unknown]
  - Injury [Unknown]
  - Gait disturbance [Unknown]
  - Drug ineffective [Unknown]
